APPROVED DRUG PRODUCT: ISOSORBIDE MONONITRATE
Active Ingredient: ISOSORBIDE MONONITRATE
Strength: 30MG
Dosage Form/Route: TABLET, EXTENDED RELEASE;ORAL
Application: A218255 | Product #001
Applicant: ZYDUS PHARMACEUTICALS USA INC
Approved: Feb 15, 2024 | RLD: No | RS: No | Type: DISCN